FAERS Safety Report 25480926 (Version 3)
Quarter: 2025Q3

REPORT INFORMATION
  Report Type: Spontaneous
  Country: US (occurrence: US)
  Receive Date: 20250625
  Receipt Date: 20250807
  Transmission Date: 20251020
  Serious: Yes (Other)
  Sender: BLUEPRINT MEDICINES
  Company Number: US-Blueprint Medicines Corporation-2025-AER-01369

PATIENT
  Age: 44 Year
  Sex: Female
  Weight: 110.68 kg

DRUGS (6)
  1. AYVAKIT [Suspect]
     Active Substance: AVAPRITINIB
     Indication: Mast cell activation syndrome
     Route: 065
     Dates: start: 20250425
  2. AYVAKIT [Suspect]
     Active Substance: AVAPRITINIB
     Indication: Hereditary alpha tryptasaemia
     Route: 065
     Dates: start: 20250425
  3. AYVAKIT [Suspect]
     Active Substance: AVAPRITINIB
     Route: 065
  4. CROMOLYN [Concomitant]
     Active Substance: CROMOLYN
     Indication: Product used for unknown indication
     Route: 065
     Dates: start: 2024
  5. PEPCID [Concomitant]
     Active Substance: FAMOTIDINE
     Indication: Product used for unknown indication
     Route: 065
     Dates: start: 2023
  6. CLARITIN [Concomitant]
     Active Substance: LORATADINE
     Indication: Product used for unknown indication
     Route: 065
     Dates: start: 2022

REACTIONS (10)
  - Hair colour changes [Not Recovered/Not Resolved]
  - Alopecia [Recovering/Resolving]
  - Platelet disorder [Unknown]
  - Contusion [Unknown]
  - Dizziness [Recovering/Resolving]
  - Abnormal dreams [Unknown]
  - Nightmare [Unknown]
  - Emotional distress [Unknown]
  - Tryptase [Unknown]
  - Blood uric acid increased [Unknown]

NARRATIVE: CASE EVENT DATE: 20250601
